FAERS Safety Report 6239422-5 (Version None)
Quarter: 2009Q2

REPORT INFORMATION
  Report Type: 
  Country: None (occurrence: None)
  Receive Date: 20090622
  Receipt Date: 20090609
  Transmission Date: 20091009
  Serious: Yes (Other)
  Sender: FDA-Public Use
  Company Number: GB-ELI_LILLY_AND_COMPANY-GB200905001689

PATIENT
  Sex: Male
  Weight: 99.9 kg

DRUGS (6)
  1. HUMALOG [Suspect]
     Indication: TYPE 2 DIABETES MELLITUS
     Dosage: 36 IU, UNK
     Route: 058
     Dates: start: 20060101, end: 20090617
  2. HUMALOG [Suspect]
     Dosage: 30 IU, UNK
     Route: 058
     Dates: start: 20090618
  3. METFORMIN HCL [Concomitant]
     Dosage: 500 MG, 2/D
     Route: 048
  4. FENOFIBRATE [Concomitant]
     Dosage: 26 MG, DAILY (1/D)
     Route: 048
  5. ASPIRIN [Concomitant]
     Dosage: 75 MG, 2/D
     Route: 048
  6. LEVEMIR [Concomitant]
     Dosage: 28 IU, 2/D
     Route: 058

REACTIONS (1)
  - INJECTION SITE ERYTHEMA [None]
